FAERS Safety Report 4387080-7 (Version None)
Quarter: 2004Q2

REPORT INFORMATION
  Report Type: 
  Country: None (occurrence: None)
  Receive Date: 20040630
  Receipt Date: 20040304
  Transmission Date: 20050107
  Serious: No
  Sender: FDA-Public Use
  Company Number: US-GLAXOSMITHKLINE-A0501192A

PATIENT
  Sex: Female

DRUGS (1)
  1. ADVAIR HFA [Suspect]
     Indication: ILL-DEFINED DISORDER
     Dosage: 1PUFF VARIABLE DOSE
     Route: 055
     Dates: start: 20040301

REACTIONS (2)
  - ILL-DEFINED DISORDER [None]
  - STOMACH DISCOMFORT [None]
